FAERS Safety Report 10803873 (Version 1)
Quarter: 2015Q1

REPORT INFORMATION
  Report Type: Spontaneous
  Country: US (occurrence: US)
  Receive Date: 20150217
  Receipt Date: 20150217
  Transmission Date: 20150721
  Serious: Yes (Hospitalization)
  Sender: FDA-Public Use
  Company Number: US-WATSON-2015-02200

PATIENT
  Age: 48 Year
  Sex: Male

DRUGS (2)
  1. ANDRODERM [Suspect]
     Active Substance: TESTOSTERONE
     Indication: BLOOD TESTOSTERONE DECREASED
     Dosage: UNK
     Route: 065
     Dates: start: 20070813
  2. TESTOSTERONE ENANTHATE (UNKNOWN) [Suspect]
     Active Substance: TESTOSTERONE ENANTHATE
     Indication: BLOOD TESTOSTERONE DECREASED
     Dosage: UNK
     Route: 065
     Dates: start: 200709

REACTIONS (3)
  - Acute myocardial infarction [Unknown]
  - Chest pain [Unknown]
  - Aphasia [Unknown]

NARRATIVE: CASE EVENT DATE: 20120820
